FAERS Safety Report 16039933 (Version 1)
Quarter: 2019Q1

REPORT INFORMATION
  Report Type: Spontaneous
  Country: IE (occurrence: IE)
  Receive Date: 20190306
  Receipt Date: 20190306
  Transmission Date: 20190418
  Serious: Yes (Other)
  Sender: FDA-Public Use
  Company Number: IE-TEVA-2019-IE-1018414

PATIENT
  Age: 2 Year
  Sex: Female
  Weight: 14 kg

DRUGS (3)
  1. VENTOLIN [Concomitant]
     Active Substance: ALBUTEROL SULFATE
     Route: 065
  2. MONTELUKAST TEVA [Suspect]
     Active Substance: MONTELUKAST SODIUM
     Indication: ASTHMA
     Dosage: 4 MILLIGRAM DAILY; BATCH EXPIRY: 09/2020
     Route: 048
     Dates: start: 20181207
  3. BECOTIDE EVOHALER [Concomitant]
     Route: 065

REACTIONS (3)
  - Emotional distress [Recovered/Resolved]
  - Sleep terror [Recovered/Resolved]
  - Pruritus [Recovered/Resolved]
